FAERS Safety Report 21046324 (Version 1)
Quarter: 2022Q3

REPORT INFORMATION
  Report Type: Spontaneous
  Country: US (occurrence: US)
  Receive Date: 20220706
  Receipt Date: 20220706
  Transmission Date: 20221027
  Serious: Yes (Other)
  Sender: FDA-Public Use
  Company Number: US-SPC-000112

PATIENT
  Age: 80 Year
  Sex: Male

DRUGS (9)
  1. CLINDAMYCIN [Suspect]
     Active Substance: CLINDAMYCIN
     Indication: Babesiosis
     Route: 065
     Dates: start: 20210804, end: 20210816
  2. QUININE [Suspect]
     Active Substance: QUININE
     Indication: Babesiosis
     Route: 065
     Dates: start: 20210804, end: 20210816
  3. ATOVAQUONE [Suspect]
     Active Substance: ATOVAQUONE
     Indication: Babesiosis
     Route: 065
     Dates: start: 20210907
  4. AZITHROMYCIN [Suspect]
     Active Substance: AZITHROMYCIN
     Indication: Babesiosis
     Route: 065
     Dates: start: 20210907
  5. QUININE [Suspect]
     Active Substance: QUININE
     Indication: Babesiosis
     Route: 065
  6. ATOVAQUONE [Suspect]
     Active Substance: ATOVAQUONE
     Indication: Babesiosis
     Route: 065
     Dates: start: 20220102
  7. AZITHROMYCIN [Suspect]
     Active Substance: AZITHROMYCIN
     Indication: Babesiosis
     Route: 065
     Dates: start: 20220102
  8. CLINDAMYCIN [Suspect]
     Active Substance: CLINDAMYCIN
     Indication: Babesiosis
     Route: 065
     Dates: start: 20220102, end: 20220113
  9. CLINDAMYCIN [Suspect]
     Active Substance: CLINDAMYCIN
     Indication: Babesiosis
     Route: 065
     Dates: start: 20211015, end: 2021

REACTIONS (7)
  - Nausea [Unknown]
  - Vomiting [Unknown]
  - Deafness [Unknown]
  - Drug resistance [Unknown]
  - Diarrhoea [Unknown]
  - Abdominal discomfort [Unknown]
  - Product use in unapproved indication [Unknown]

NARRATIVE: CASE EVENT DATE: 20210801
